FAERS Safety Report 4865223-6 (Version None)
Quarter: 2005Q4

REPORT INFORMATION
  Report Type: 
  Country: None (occurrence: None)
  Receive Date: 20051219
  Receipt Date: 20051207
  Transmission Date: 20060501
  Serious: Yes (Hospitalization)
  Sender: FDA-Public Use
  Company Number: HQWYE586717NOV05

PATIENT
  Age: 41 Year
  Sex: Female

DRUGS (14)
  1. RAPAMUNE [Suspect]
     Indication: PROPHYLAXIS AGAINST TRANSPLANT REJECTION
     Dosage: 5 MG 1X PER 1 DAY ORAL; SEE IMAGE
     Route: 048
     Dates: start: 20051129, end: 20050101
  2. RAPAMUNE [Suspect]
     Indication: PROPHYLAXIS AGAINST TRANSPLANT REJECTION
     Dosage: 5 MG 1X PER 1 DAY ORAL; SEE IMAGE
     Route: 048
     Dates: start: 20051104, end: 20051116
  3. RAPAMUNE [Suspect]
     Indication: PROPHYLAXIS AGAINST TRANSPLANT REJECTION
     Dosage: 5 MG 1X PER 1 DAY ORAL; SEE IMAGE
     Route: 048
     Dates: start: 20050101, end: 20051205
  4. NIFEDIPINE [Concomitant]
  5. HYDRALAZINE HCL [Concomitant]
  6. RANITIDINE [Concomitant]
  7. ACYCLOVIR [Concomitant]
  8. NISTATIN (NYSTATIN) [Concomitant]
  9. CALCIUM CARBONATE (CALCIUM CARBONATE) [Concomitant]
  10. MYCOPHENOLATE MOFETIL        (MYCOPHENOLATE MOFETIL) [Concomitant]
  11. INSULIN [Concomitant]
  12. FUROSEMIDE [Concomitant]
  13. PREDNISONE 50MG TAB [Concomitant]
  14. SODIUM BICARBONATE [Concomitant]

REACTIONS (6)
  - ANURIA [None]
  - COMPLICATIONS OF TRANSPLANTED KIDNEY [None]
  - HAEMODIALYSIS [None]
  - KIDNEY TRANSPLANT REJECTION [None]
  - LEUKOPENIA [None]
  - URINARY TRACT INFECTION [None]
